FAERS Safety Report 10027579 (Version 2)
Quarter: 2014Q2

REPORT INFORMATION
  Report Type: Spontaneous
  Country: US (occurrence: US)
  Receive Date: 20140321
  Receipt Date: 20140529
  Transmission Date: 20141212
  Serious: Yes (Hospitalization)
  Sender: FDA-Public Use
  Company Number: US-BAYER-2014-043004

PATIENT
  Age: 24 Year
  Sex: Female
  Weight: 58.96 kg

DRUGS (10)
  1. MIRENA [Suspect]
     Indication: CONTRACEPTION
     Dosage: 20 MCG/24HR, CONT
     Route: 015
     Dates: start: 20101018, end: 20120312
  2. FLEXERIL [Concomitant]
     Indication: MUSCLE SPASMS
     Dosage: UNK
     Dates: start: 2006, end: 2013
  3. VICODIN [Concomitant]
     Indication: ARTHRALGIA
     Dosage: 500 MG/5 MG
  4. ACETAMINOPHEN W/HYDROCODONE [Concomitant]
     Indication: ARTHRALGIA
     Dosage: 500 MG/5 MG
  5. CITALOPRAM [Concomitant]
     Dosage: 40 MG, UNK
  6. HAEMORRHOIDAL [Concomitant]
  7. HYDROXYZINE [Concomitant]
     Dosage: 10 MG, UNK
  8. OMEPRAZOLE [Concomitant]
  9. HYDROCORTISON-TAB [HYDROCORTISONE] [Concomitant]
  10. NAPROXEN [Concomitant]

REACTIONS (14)
  - Mental disorder [None]
  - Depression [None]
  - Anxiety [None]
  - Procedural pain [None]
  - Device issue [None]
  - Medical device pain [None]
  - Device failure [None]
  - Uterine perforation [None]
  - Pelvic pain [None]
  - Injury [None]
  - Emotional distress [None]
  - Arthralgia [None]
  - Dysuria [None]
  - Sexual dysfunction [None]
